FAERS Safety Report 8966168 (Version 1)
Quarter: 2012Q4

REPORT INFORMATION
  Report Type: Spontaneous
  Country: US (occurrence: None)
  Receive Date: 20121204
  Receipt Date: 20121204
  Transmission Date: 20130627
  Serious: Yes (Hospitalization)
  Sender: FDA-Public Use
  Company Number: 2012292467

PATIENT
  Age: 69 Year
  Sex: Male

DRUGS (10)
  1. CISPLATIN [Suspect]
     Indication: HEAD AND NECK CANCER
     Dosage: 75 mg/m2,  UNK,  Intravenous
     Route: 042
  2. CISPLATIN [Suspect]
     Indication: HEAD AND NECK CANCER
     Dosage: UNK
04/08/2011  to  04/08/2011
     Dates: start: 20110408, end: 20110408
  3. FRAGMIN (DALTEPARIN SODIUM) SOLUTION FOR INJECTION [Suspect]
     Indication: THROMBOSIS
     Dosage: UNK    
UNK to 04/12/2011
     Dates: end: 20110412
  4. DOCETAXEL [Suspect]
     Indication: HEAD AND NECK CANCER
     Dosage: 56 mg/m2,  UNK,  Intravenous
     Route: 042
  5. DOCETAXEL [Suspect]
     Indication: HEAD AND NECK CANCER
     Dosage: UNK
04/08/2011  to  04/08/2011
     Dates: start: 20110408, end: 20110408
  6. BLINDED THERAPY [Suspect]
     Indication: HEAD AND NECK CANCER
     Dosage: 150 mg,  1x/day,  Oral
     Route: 048
     Dates: start: 20110116, end: 20110412
  7. OMEPRAZOLE (OMEPRAZOLE) [Concomitant]
  8. LOMOTIL (ATROPINE SULFATE, DIPENOXYLATE HYDROCHLORIDE) [Concomitant]
  9. ZOFRAN (ONDANSETRON HYDROCHLORIDE) [Concomitant]
  10. COREG (CARVEDILOL) [Concomitant]

REACTIONS (7)
  - Diarrhoea [None]
  - Oesophageal haemorrhage [None]
  - Oesophageal ulcer [None]
  - Anaemia [None]
  - Hypokalaemia [None]
  - Nausea [None]
  - Prothrombin time prolonged [None]
